FAERS Safety Report 21156419 (Version 1)
Quarter: 2022Q3

REPORT INFORMATION
  Report Type: Spontaneous
  Country: US (occurrence: US)
  Receive Date: 20220801
  Receipt Date: 20220801
  Transmission Date: 20221027
  Serious: No
  Sender: FDA-Public Use
  Company Number: US-PADAGIS-2022PAD00190

PATIENT

DRUGS (1)
  1. PROCTO-MED HC [Suspect]
     Active Substance: HYDROCORTISONE
     Indication: Haemorrhoidal haemorrhage
     Dosage: AS NEEDED
     Route: 065
     Dates: start: 20220409

REACTIONS (4)
  - Condition aggravated [Unknown]
  - Product packaging quantity issue [Unknown]
  - Inappropriate schedule of product administration [Unknown]
  - Product use in unapproved indication [Unknown]
